FAERS Safety Report 8914278 (Version 1)
Quarter: 2012Q4

REPORT INFORMATION
  Report Type: 
  Country: SE (occurrence: SE)
  Receive Date: 20121119
  Receipt Date: 20121119
  Transmission Date: 20130627
  Serious: Yes (Hospitalization)
  Sender: FDA-Public Use
  Company Number: SE-JNJFOC-20121105367

PATIENT
  Age: 64 Year
  Sex: Female

DRUGS (7)
  1. SIMPONI [Suspect]
     Indication: RHEUMATOID ARTHRITIS
     Route: 058
     Dates: start: 201205
  2. METHOTREXATE [Concomitant]
     Dosage: 8 tablets of 2.5 mg each
     Route: 065
  3. SALURES [Concomitant]
     Route: 065
  4. ORUDIS (KETOPROFEN) [Concomitant]
     Route: 065
  5. IDEOS [Concomitant]
     Dosage: dose: 500 mg/400 IU twice daily
     Route: 065
  6. FOLACIN [Concomitant]
     Dosage: 1 tablet once daily two times per week
     Route: 065
  7. VAGIFEM [Concomitant]
     Route: 065

REACTIONS (2)
  - Chest discomfort [Not Recovered/Not Resolved]
  - Feeling abnormal [Not Recovered/Not Resolved]
